FAERS Safety Report 5520375-X (Version None)
Quarter: 2007Q4

REPORT INFORMATION
  Report Type: 
  Country: None (occurrence: None)
  Receive Date: 20071119
  Receipt Date: 20071112
  Transmission Date: 20080405
  Serious: Yes (Other)
  Sender: FDA-Public Use
  Company Number: PHEH2007US13712

PATIENT
  Age: 86 Year
  Sex: Female

DRUGS (1)
  1. EXELON [Suspect]
     Indication: DEMENTIA ALZHEIMER'S TYPE
     Dosage: 4.6 UNK, QD
     Route: 062
     Dates: start: 20070913, end: 20070927

REACTIONS (5)
  - AGITATION [None]
  - CONFUSIONAL STATE [None]
  - DELUSION [None]
  - PARANOIA [None]
  - URINARY TRACT INFECTION [None]
